FAERS Safety Report 5946453-9 (Version None)
Quarter: 2008Q4

REPORT INFORMATION
  Report Type: 
  Country: None (occurrence: None)
  Receive Date: 20081110
  Receipt Date: 20081104
  Transmission Date: 20090506
  Serious: Yes (Other)
  Sender: FDA-Public Use
  Company Number: US-BAYER-200813946BCC

PATIENT
  Age: 58 Year
  Sex: Female
  Weight: 75 kg

DRUGS (10)
  1. ALEVE [Suspect]
     Indication: PAIN
     Dosage: TOTAL DAILY DOSE: 220 MG  UNIT DOSE: 220 MG
     Route: 048
     Dates: start: 20080918, end: 20080918
  2. ALEVE [Suspect]
  3. BLINDED THERAPY [Suspect]
     Indication: DRUG USE FOR UNKNOWN INDICATION
     Dates: start: 20080808
  4. ACETYLSALICYLIC ACID SRT [Concomitant]
     Route: 048
     Dates: start: 20060101
  5. COSAMIN DS [Concomitant]
     Route: 048
     Dates: start: 20060101
  6. CYANOCOBALAMIN [Concomitant]
  7. CELEBREX [Concomitant]
     Dosage: UNIT DOSE: 200 MG
     Route: 048
     Dates: start: 20060101
  8. DOCUSATE SODIUM [Concomitant]
     Route: 048
     Dates: start: 20060101
  9. PSYLLIUM HYDROPHILIC MUCILLOID [Concomitant]
     Route: 048
     Dates: start: 20060101
  10. EXCEDRIN (MIGRAINE) [Concomitant]
     Route: 048
     Dates: start: 20080101

REACTIONS (5)
  - DYSPNOEA [None]
  - HYPERSENSITIVITY [None]
  - HYPOTENSION [None]
  - LOSS OF CONSCIOUSNESS [None]
  - THROAT TIGHTNESS [None]
